FAERS Safety Report 14994589 (Version 1)
Quarter: 2018Q2

REPORT INFORMATION
  Report Type: Report from Study
  Country: IT (occurrence: IT)
  Receive Date: 20180611
  Receipt Date: 20180611
  Transmission Date: 20180711
  Serious: Yes (Other)
  Sender: FDA-Public Use
  Company Number: IT-TEVA-2018-IT-904220

PATIENT
  Age: 60 Year
  Sex: Male

DRUGS (2)
  1. INFLUENZA VIRUS VACCINE H1N1 MONOVALENT [Concomitant]
     Indication: IMMUNISATION
     Route: 065
  2. ATORVASTATIN [Suspect]
     Active Substance: ATORVASTATIN
     Route: 065

REACTIONS (10)
  - Foaming at mouth [Recovered/Resolved]
  - Leukocytosis [Recovered/Resolved]
  - Vomiting [Recovered/Resolved]
  - Seizure [Recovered/Resolved]
  - Gaze palsy [Recovered/Resolved]
  - Generalised tonic-clonic seizure [Recovered/Resolved]
  - Hyperglycaemia [Recovered/Resolved]
  - Back pain [Recovered/Resolved]
  - Rhabdomyolysis [Recovered/Resolved]
  - Tonic convulsion [Recovered/Resolved]
